FAERS Safety Report 16011525 (Version 4)
Quarter: 2019Q2

REPORT INFORMATION
  Report Type: Spontaneous
  Country: US (occurrence: US)
  Receive Date: 20190227
  Receipt Date: 20190627
  Transmission Date: 20190711
  Serious: Yes (Other)
  Sender: FDA-Public Use
  Company Number: US-PFIZER INC-2019073195

PATIENT
  Age: 60 Year
  Sex: Female
  Weight: 108.8 kg

DRUGS (8)
  1. NARDIL [Suspect]
     Active Substance: PHENELZINE SULFATE
     Indication: PANIC ATTACK
     Dosage: 30 MG, 2X/DAY (30 MGIN THE AM AND 30 MG. IN THE PM)
     Route: 048
     Dates: start: 198109
  2. NARDIL [Suspect]
     Active Substance: PHENELZINE SULFATE
     Indication: AGORAPHOBIA
     Dosage: 30 MG, 3X/DAY (2 PO (PER ORAL) TID (THRICE DAILY) 30 MG BY MOUTH THREE TIMES A DAY)
     Route: 048
  3. NARDIL [Suspect]
     Active Substance: PHENELZINE SULFATE
     Indication: DEPRESSION
  4. ALPRAZOLAM. [Concomitant]
     Active Substance: ALPRAZOLAM
     Indication: ANXIETY
     Dosage: UNK [UP TO 4MG PER DAY]
  5. NARDIL [Suspect]
     Active Substance: PHENELZINE SULFATE
     Indication: MAJOR DEPRESSION
     Dosage: 0.5 MG, 3X/DAY
     Route: 048
  6. ALPRAZOLAM. [Concomitant]
     Active Substance: ALPRAZOLAM
     Indication: PANIC ATTACK
     Dosage: 0.5 MG, AS NEEDED
     Route: 048
  7. OXYCODONE [Concomitant]
     Active Substance: OXYCODONE
     Dosage: 5 MG, UNK [5MG, 1-2 TABLETS, BY MOUTH, EVERY 4 HOURS]
     Route: 048
  8. ALPRAZOLAM. [Concomitant]
     Active Substance: ALPRAZOLAM
     Dosage: 0.5 MG, 3X/DAY
     Route: 048
     Dates: start: 1989

REACTIONS (2)
  - Pancreatic carcinoma [Unknown]
  - Tremor [Not Recovered/Not Resolved]

NARRATIVE: CASE EVENT DATE: 201905
